FAERS Safety Report 9380230 (Version 1)
Quarter: 2013Q3

REPORT INFORMATION
  Report Type: Spontaneous
  Country: US (occurrence: US)
  Receive Date: 20130702
  Receipt Date: 20130702
  Transmission Date: 20140515
  Serious: No
  Sender: FDA-Public Use
  Company Number: US-TEVA-416335USA

PATIENT
  Age: 56 Year
  Sex: Female
  Weight: 74.91 kg

DRUGS (5)
  1. COPAXONE [Suspect]
     Indication: MULTIPLE SCLEROSIS
     Dates: start: 20030627, end: 201306
  2. ULTRAM [Concomitant]
     Indication: PAIN
     Dosage: PRN
     Route: 048
  3. PLAVIX [Concomitant]
     Indication: PROPHYLAXIS
     Dosage: QD
     Route: 048
  4. GABAPENTIN [Concomitant]
     Indication: PAIN
     Route: 048
  5. ATENOLOL [Concomitant]
     Indication: HYPERTENSION
     Route: 048

REACTIONS (2)
  - Urticaria [Unknown]
  - Injection site erythema [Unknown]
